FAERS Safety Report 9513249 (Version 3)
Quarter: 2013Q4

REPORT INFORMATION
  Report Type: Spontaneous
  Country: GB (occurrence: GB)
  Receive Date: 20130910
  Receipt Date: 20131011
  Transmission Date: 20140711
  Serious: Yes (Life-Threatening)
  Sender: FDA-Public Use
  Company Number: GB-US-EMD SERONO, INC.-7235531

PATIENT
  Age: 21 Year
  Sex: Female

DRUGS (3)
  1. CETROTIDE (CETRORELIX ACETATE FOR INJECTION) [Suspect]
     Indication: OVULATION INDUCTION
     Route: 058
     Dates: start: 20130901, end: 20130902
  2. DOXYCYCLINE [Suspect]
     Indication: PROPHYLAXIS
     Route: 048
     Dates: start: 20130902, end: 20130902
  3. MENOPUR /01277604/ [Suspect]
     Indication: OVULATION INDUCTION
     Route: 058
     Dates: start: 20130829, end: 20130901

REACTIONS (1)
  - Anaphylactic reaction [Recovered/Resolved]
